FAERS Safety Report 24447776 (Version 4)
Quarter: 2025Q1

REPORT INFORMATION
  Report Type: Spontaneous
  Country: US (occurrence: US)
  Receive Date: 20241016
  Receipt Date: 20250318
  Transmission Date: 20250409
  Serious: No
  Sender: SANOFI AVENTIS
  Company Number: US-SA-2024SA294635

PATIENT
  Age: 77 Year
  Sex: Female
  Weight: 71.2 kg

DRUGS (21)
  1. DUPIXENT [Suspect]
     Active Substance: DUPILUMAB
     Indication: Dermatitis
     Route: 058
     Dates: start: 202410, end: 202410
  2. DUPIXENT [Suspect]
     Active Substance: DUPILUMAB
     Indication: Dermatitis atopic
     Dosage: 300 MG, QOW
     Route: 058
     Dates: start: 202410
  3. DUPIXENT [Suspect]
     Active Substance: DUPILUMAB
     Indication: Neurodermatitis
  4. AMLODIPINE [Concomitant]
     Active Substance: AMLODIPINE BESYLATE
  5. BETAMETHASONE [Concomitant]
     Active Substance: BETAMETHASONE
  6. BUPROPION [Concomitant]
     Active Substance: BUPROPION
  7. CARVEDILOL [Concomitant]
     Active Substance: CARVEDILOL
  8. CELECOXIB [Concomitant]
     Active Substance: CELECOXIB
  9. CIPROFLOXACIN HYDROCHLORIDE [Concomitant]
     Active Substance: CIPROFLOXACIN HYDROCHLORIDE
  10. DEXLANSOPRAZOLE [Concomitant]
     Active Substance: DEXLANSOPRAZOLE
  11. DIGOXIN [Concomitant]
     Active Substance: DIGOXIN
  12. DOXEPIN [Concomitant]
     Active Substance: DOXEPIN
  13. DULOXETINE [Concomitant]
     Active Substance: DULOXETINE
  14. HYDROXYCHLOROQUINE SULFATE [Concomitant]
     Active Substance: HYDROXYCHLOROQUINE SULFATE
  15. HYDROXYZINE HYDROCHLORIDE [Concomitant]
     Active Substance: HYDROXYZINE HYDROCHLORIDE
  16. LEFLUNOMIDE [Concomitant]
     Active Substance: LEFLUNOMIDE
  17. OLMESARTAN [Concomitant]
     Active Substance: OLMESARTAN
  18. PREGABALIN [Concomitant]
     Active Substance: PREGABALIN
  19. TRAMADOL HCL [Concomitant]
     Active Substance: TRAMADOL HYDROCHLORIDE
  20. TRIAMCINOLONE [Concomitant]
     Active Substance: TRIAMCINOLONE
  21. TRAMADOL [Concomitant]
     Active Substance: TRAMADOL

REACTIONS (9)
  - Skin lesion [Unknown]
  - Skin infection [Unknown]
  - Erythema [Unknown]
  - Pruritus [Unknown]
  - Neurodermatitis [Recovered/Resolved]
  - Symptom recurrence [Recovered/Resolved]
  - Pruritus [Recovered/Resolved]
  - Therapeutic response shortened [Unknown]
  - Product use in unapproved indication [Unknown]

NARRATIVE: CASE EVENT DATE: 20240101
